FAERS Safety Report 16910550 (Version 1)
Quarter: 2019Q4

REPORT INFORMATION
  Report Type: Spontaneous
  Country: US (occurrence: US)
  Receive Date: 20191011
  Receipt Date: 20191011
  Transmission Date: 20200122
  Serious: Yes (Other)
  Sender: FDA-Public Use
  Company Number: US-JAZZ-JPI-P-029889

PATIENT
  Age: 57 Year
  Sex: Female

DRUGS (5)
  1. XYREM [Suspect]
     Active Substance: SODIUM OXYBATE
     Dosage: 1.5 G, BID
     Route: 048
     Dates: start: 201302
  2. XYREM [Suspect]
     Active Substance: SODIUM OXYBATE
     Indication: NARCOLEPSY
     Dosage: 2.25 G, BID
     Route: 048
     Dates: start: 20130110, end: 20130204
  3. XYREM [Suspect]
     Active Substance: SODIUM OXYBATE
     Dosage: 3 G, QD
     Route: 048
     Dates: start: 20130206, end: 201302
  4. FIORICET WITH CODEINE [Suspect]
     Active Substance: ACETAMINOPHEN\BUTALBITAL\CAFFEINE\CODEINE PHOSPHATE
     Indication: MIGRAINE
  5. XYREM [Suspect]
     Active Substance: SODIUM OXYBATE
     Indication: CATAPLEXY
     Dosage: 3 G, BID
     Route: 048
     Dates: start: 20130205, end: 20130205

REACTIONS (13)
  - Vomiting [Recovered/Resolved]
  - Salivary hypersecretion [Recovered/Resolved]
  - Product administration error [Unknown]
  - Feeling abnormal [Unknown]
  - Pain in extremity [Unknown]
  - Somnolence [Unknown]
  - Intentional product use issue [Unknown]
  - Hypertension [Recovering/Resolving]
  - Cough [Recovered/Resolved]
  - Throat irritation [Recovered/Resolved]
  - Ear discomfort [Recovered/Resolved]
  - Euphoric mood [Recovered/Resolved]
  - Paraesthesia [Unknown]

NARRATIVE: CASE EVENT DATE: 20130205
